FAERS Safety Report 21494518 (Version 3)
Quarter: 2022Q4

REPORT INFORMATION
  Report Type: Report from Study
  Country: JP (occurrence: JP)
  Receive Date: 20221021
  Receipt Date: 20221215
  Transmission Date: 20230113
  Serious: Yes (Hospitalization)
  Sender: FDA-Public Use
  Company Number: JP-ELI_LILLY_AND_COMPANY-JP202204011882

PATIENT
  Age: 66 Year
  Sex: Female
  Weight: 49 kg

DRUGS (6)
  1. RETEVMO [Suspect]
     Active Substance: SELPERCATINIB
     Indication: Medullary thyroid cancer
     Dosage: 320 MG, UNKNOWN
     Route: 048
     Dates: start: 20220322, end: 20220428
  2. RETEVMO [Suspect]
     Active Substance: SELPERCATINIB
     Dosage: 320 MG, UNKNOWN
     Route: 048
     Dates: start: 20220502, end: 20220702
  3. RETEVMO [Suspect]
     Active Substance: SELPERCATINIB
     Dosage: 320 MG, UNKNOWN
     Route: 048
     Dates: start: 20220705, end: 20220828
  4. LEVOTHYROXINE [Concomitant]
     Active Substance: LEVOTHYROXINE
     Indication: Central hypothyroidism
  5. ONEALFA [Concomitant]
     Active Substance: ALFACALCIDOL
     Indication: Hyperparathyroidism secondary
  6. ACETAMINOPHEN\TRAMADOL HYDROCHLORIDE [Concomitant]
     Active Substance: ACETAMINOPHEN\TRAMADOL HYDROCHLORIDE
     Indication: Lumbar spinal stenosis

REACTIONS (1)
  - Hypertensive emergency [Recovering/Resolving]

NARRATIVE: CASE EVENT DATE: 20220828
